FAERS Safety Report 5776452-1 (Version None)
Quarter: 2008Q2

REPORT INFORMATION
  Report Type: 
  Country: None (occurrence: None)
  Receive Date: 20080617
  Receipt Date: 20080617
  Transmission Date: 20081010
  Serious: Yes (Life-Threatening)
  Sender: FDA-Public Use
  Company Number: None

PATIENT
  Sex: Female

DRUGS (1)
  1. DIGITEK 0.125MG. AMIDE FOR BERTEK UDL LABS [Suspect]
     Dosage: 1 TABLET IN AM DAILY
     Dates: start: 20070401, end: 20080401

REACTIONS (1)
  - HEART RATE DECREASED [None]
